FAERS Safety Report 5028989-0 (Version None)
Quarter: 2006Q2

REPORT INFORMATION
  Report Type: 
  Country: None (occurrence: None)
  Receive Date: 20060501
  Receipt Date: 20060123
  Transmission Date: 20061013
  Serious: No
  Sender: FDA-Public Use
  Company Number: 200610940US

PATIENT
  Age: 68 Year
  Sex: Male
  Weight: 72.5755 kg

DRUGS (3)
  1. KETEK [Suspect]
     Indication: SINUS DISORDER
     Dosage: 400 MG PO
     Route: 048
     Dates: start: 20060113, end: 20060119
  2. METOPROLOL SUCCINATE [Concomitant]
  3. HYTRIN [Concomitant]

REACTIONS (7)
  - DIARRHOEA [None]
  - DRY MOUTH [None]
  - DYSGEUSIA [None]
  - MUSCLE SPASMS [None]
  - NIGHT SWEATS [None]
  - STOMACH DISCOMFORT [None]
  - WEIGHT DECREASED [None]
